FAERS Safety Report 11398256 (Version 3)
Quarter: 2015Q4

REPORT INFORMATION
  Report Type: Spontaneous
  Country: US (occurrence: US)
  Receive Date: 20150820
  Receipt Date: 20151006
  Transmission Date: 20160304
  Serious: Yes (Other)
  Sender: FDA-Public Use
  Company Number: US-ROCHE-1623852

PATIENT
  Sex: Male
  Weight: 111.23 kg

DRUGS (2)
  1. ESBRIET [Suspect]
     Active Substance: PIRFENIDONE
     Dosage: 3 CAPS BID
     Route: 048
     Dates: start: 20150318
  2. ESBRIET [Suspect]
     Active Substance: PIRFENIDONE
     Indication: IDIOPATHIC PULMONARY FIBROSIS
     Dosage: 3 CAPS TID
     Route: 048
     Dates: start: 20150318

REACTIONS (8)
  - Dysgeusia [Unknown]
  - Rash erythematous [Unknown]
  - Decreased appetite [Unknown]
  - Hepatic enzyme increased [Unknown]
  - Liver function test abnormal [Unknown]
  - Asthenia [Unknown]
  - Pruritus generalised [Unknown]
  - Skin exfoliation [Unknown]
